FAERS Safety Report 15311823 (Version 2)
Quarter: 2019Q2

REPORT INFORMATION
  Report Type: Spontaneous
  Country: GB (occurrence: GB)
  Receive Date: 20180823
  Receipt Date: 20190405
  Transmission Date: 20190711
  Serious: Yes (Other)
  Sender: FDA-Public Use
  Company Number: GB-PFIZER INC-2018333424

PATIENT
  Age: 38 Year
  Sex: Male

DRUGS (1)
  1. GENOTROPIN [Suspect]
     Active Substance: SOMATROPIN
     Indication: GROWTH HORMONE DEFICIENCY
     Dosage: 0.2 MG, 3 DOSES PER WEEK
     Dates: start: 20140502

REACTIONS (3)
  - Product dose omission [Unknown]
  - Mobility decreased [Unknown]
  - Gait disturbance [Unknown]
